FAERS Safety Report 8810482 (Version 7)
Quarter: 2014Q1

REPORT INFORMATION
  Report Type: Spontaneous
  Country: US (occurrence: US)
  Receive Date: 20120927
  Receipt Date: 20140210
  Transmission Date: 20141002
  Serious: Yes (Hospitalization, Other)
  Sender: FDA-Public Use
  Company Number: US-BIOGENIDEC-2012BI040559

PATIENT
  Sex: Female

DRUGS (4)
  1. AVONEX [Suspect]
     Indication: MULTIPLE SCLEROSIS
     Route: 030
     Dates: start: 1997
  2. AVONEX [Suspect]
     Indication: MULTIPLE SCLEROSIS
     Route: 030
     Dates: start: 20030322
  3. AVONEX [Suspect]
     Indication: MULTIPLE SCLEROSIS
     Route: 030
     Dates: start: 20130304
  4. DILANTIN [Concomitant]

REACTIONS (10)
  - Dysphemia [Recovered/Resolved]
  - Fatigue [Recovered/Resolved]
  - Pyrexia [Recovered/Resolved]
  - Pain in extremity [Recovered/Resolved]
  - Cerebrovascular accident [Recovered/Resolved]
  - Pseudobulbar palsy [Unknown]
  - Convulsion [Recovered/Resolved]
  - Myocardial infarction [Recovered/Resolved]
  - Visual impairment [Not Recovered/Not Resolved]
  - Hypotonia [Not Recovered/Not Resolved]
